FAERS Safety Report 13600548 (Version 1)
Quarter: 2017Q2

REPORT INFORMATION
  Report Type: Spontaneous
  Country: US (occurrence: US)
  Receive Date: 20170601
  Receipt Date: 20170601
  Transmission Date: 20170830
  Serious: Yes (Other)
  Sender: FDA-Public Use
  Company Number: US-STRIDES ARCOLAB LIMITED-2017SP006747

PATIENT

DRUGS (9)
  1. SIMILAC [Concomitant]
     Active Substance: DEXTROSE\WATER
     Indication: ENTERAL NUTRITION
     Dosage: 15 TO 30 ML EVERY 3 HOURS
     Route: 065
  2. METRONIDAZOLE. [Suspect]
     Active Substance: METRONIDAZOLE
     Indication: NECROTISING ENTEROCOLITIS NEONATAL
     Dosage: 15 MG/KG, EVERY 12 HRS
     Route: 042
  3. AMPICILLIN [Concomitant]
     Active Substance: AMPICILLIN
     Dosage: 100 MG/KG, EVERY 12 HRS
     Route: 042
  4. GENTAMICIN. [Concomitant]
     Active Substance: GENTAMICIN
     Indication: NECROTISING ENTEROCOLITIS NEONATAL
     Dosage: 4 MG/KG/DAY, UNK
     Route: 065
  5. GENTAMICIN. [Concomitant]
     Active Substance: GENTAMICIN
     Dosage: 4 MG/KG/DAY, UNK
     Route: 065
  6. NEOCATE [Concomitant]
     Active Substance: DIETARY SUPPLEMENT
     Indication: ENTERAL NUTRITION
     Dosage: 140 ML/KG/DAY
     Route: 065
  7. AMPICILLIN [Concomitant]
     Active Substance: AMPICILLIN
     Indication: NECROTISING ENTEROCOLITIS NEONATAL
     Dosage: 100 MG/KG, EVERY 12 HRS
     Route: 065
  8. VANCOMYCIN [Concomitant]
     Active Substance: VANCOMYCIN
     Indication: NECROTISING ENTEROCOLITIS NEONATAL
     Dosage: 10 MG/KG, EVERY 8 HOURS
     Route: 065
  9. GENTAMICIN. [Concomitant]
     Active Substance: GENTAMICIN
     Dosage: 4 MG/KG/DAY, UNK
     Route: 042

REACTIONS (2)
  - Disease progression [Unknown]
  - Abdominal distension [None]
